FAERS Safety Report 23064846 (Version 2)
Quarter: 2023Q4

REPORT INFORMATION
  Report Type: Spontaneous
  Country: US (occurrence: US)
  Receive Date: 20231013
  Receipt Date: 20231024
  Transmission Date: 20240110
  Serious: Yes (Other)
  Sender: FDA-Public Use
  Company Number: US-AMERICAN REGENT INC-2023002207

PATIENT
  Age: 35 Year
  Sex: Female

DRUGS (5)
  1. VENOFER [Suspect]
     Active Substance: IRON SUCROSE
     Indication: Iron deficiency
     Dosage: ONCE WEEKLY
     Route: 042
     Dates: start: 202309, end: 202309
  2. VENOFER [Suspect]
     Active Substance: IRON SUCROSE
     Dosage: ONCE WEEKLY
     Route: 042
     Dates: start: 202309, end: 202309
  3. VENOFER [Suspect]
     Active Substance: IRON SUCROSE
     Dosage: ONCE WEEKLY
     Route: 042
     Dates: start: 202309, end: 202309
  4. BENADRYL [Concomitant]
     Active Substance: DIPHENHYDRAMINE HYDROCHLORIDE
     Indication: Premedication
     Dosage: UNK
     Route: 065
     Dates: start: 202309, end: 202309
  5. SOLU-MEDROL [Concomitant]
     Active Substance: METHYLPREDNISOLONE SODIUM SUCCINATE
     Indication: Premedication
     Dosage: UNK
     Route: 065
     Dates: start: 202309, end: 202309

REACTIONS (4)
  - Pain threshold decreased [Not Recovered/Not Resolved]
  - Hypersensitivity [Not Recovered/Not Resolved]
  - Product use in unapproved indication [Unknown]
  - Inappropriate schedule of product administration [Unknown]

NARRATIVE: CASE EVENT DATE: 20230901
